FAERS Safety Report 24551842 (Version 2)
Quarter: 2024Q4

REPORT INFORMATION
  Report Type: Spontaneous
  Country: US (occurrence: US)
  Receive Date: 20241026
  Receipt Date: 20241031
  Transmission Date: 20250114
  Serious: No
  Sender: ABBVIE
  Company Number: US-ABBVIE-5975893

PATIENT

DRUGS (4)
  1. BOTOX [Suspect]
     Active Substance: ONABOTULINUMTOXINA
     Indication: Skin wrinkling
     Dosage: TIME INTERVAL: AS NECESSARY
     Route: 065
  2. HYALURONATE SODIUM\TRIBASIC CALCIUM PHOSPHATE [Suspect]
     Active Substance: HYALURONATE SODIUM\TRIBASIC CALCIUM PHOSPHATE
     Indication: Skin wrinkling
     Route: 065
  3. LIDOCAINE [Suspect]
     Active Substance: LIDOCAINE
     Indication: Skin wrinkling
     Route: 065
  4. JUVEDERM [Suspect]
     Active Substance: HYALURONIC ACID
     Indication: Skin wrinkling
     Route: 065

REACTIONS (1)
  - Face oedema [Recovered/Resolved]
